FAERS Safety Report 25461382 (Version 1)
Quarter: 2025Q2

REPORT INFORMATION
  Report Type: Spontaneous
  Country: US (occurrence: None)
  Receive Date: 20250610
  Receipt Date: 20250610
  Transmission Date: 20250716
  Serious: Yes (Hospitalization)
  Sender: FDA-CTU
  Company Number: None

PATIENT
  Age: 6 Month
  Sex: Female
  Weight: 8.1 kg

DRUGS (1)
  1. UNSPECIFIED INGREDIENT [Suspect]
     Active Substance: UNSPECIFIED INGREDIENT
     Indication: Teething
     Route: 048
     Dates: start: 20250210, end: 20250529

REACTIONS (9)
  - Illness [None]
  - Nasopharyngitis [None]
  - Oxygen saturation decreased [None]
  - Cough [None]
  - Respiratory tract congestion [None]
  - Insomnia [None]
  - Hypophagia [None]
  - Blood test abnormal [None]
  - Pneumonia [None]

NARRATIVE: CASE EVENT DATE: 20250213
